FAERS Safety Report 10216166 (Version 1)
Quarter: 2014Q2

REPORT INFORMATION
  Report Type: Spontaneous
  Country: US (occurrence: None)
  Receive Date: 20140603
  Receipt Date: 20140603
  Transmission Date: 20141212
  Serious: No
  Sender: FDA-Public Use
  Company Number: None

PATIENT
  Age: 64 Year
  Sex: Female

DRUGS (3)
  1. LIVALO [Suspect]
     Indication: BLOOD CHOLESTEROL INCREASED
     Dosage: 1/4 OF PILL, ONCE DAILY, TAKEN BY MOUTH
     Route: 048
     Dates: start: 20140409, end: 20140529
  2. LIVALO [Suspect]
     Dosage: 1/4 OF PILL, ONCE DAILY, TAKEN BY MOUTH
     Route: 048
     Dates: start: 20140409, end: 20140529
  3. PLAVIX [Suspect]
     Dates: start: 20140308, end: 20140416

REACTIONS (9)
  - Skin exfoliation [None]
  - Acne [None]
  - Eye inflammation [None]
  - Lacrimation increased [None]
  - Blood cholesterol abnormal [None]
  - Hordeolum [None]
  - Thermal burn [None]
  - Pruritus generalised [None]
  - Movement disorder [None]
